FAERS Safety Report 11622952 (Version 1)
Quarter: 2015Q4

REPORT INFORMATION
  Report Type: Spontaneous
  Country: US (occurrence: US)
  Receive Date: 20151013
  Receipt Date: 20151013
  Transmission Date: 20160304
  Serious: No
  Sender: FDA-Public Use
  Company Number: US-JNJFOC-20150101696

PATIENT
  Age: 76 Year
  Sex: Female
  Weight: 54.43 kg

DRUGS (2)
  1. TYLENOL EXTRA STRENGTH [Suspect]
     Active Substance: ACETAMINOPHEN
     Indication: MUSCLE SPASMS
     Dosage: 1-2 CAPLETS EVERY 6 HOURS  TOTAL OF 7 CAPLETS
     Route: 048
     Dates: start: 20150101
  2. TYLENOL EXTRA STRENGTH [Suspect]
     Active Substance: ACETAMINOPHEN
     Indication: NEURALGIA
     Dosage: 1-2 CAPLETS EVERY 6 HOURS  TOTAL OF 7 CAPLETS
     Route: 048
     Dates: start: 20150101

REACTIONS (1)
  - Incorrect dose administered [Unknown]
